FAERS Safety Report 10567908 (Version 2)
Quarter: 2014Q4

REPORT INFORMATION
  Report Type: Spontaneous
  Country: US (occurrence: US)
  Receive Date: 20141106
  Receipt Date: 20141106
  Transmission Date: 20150529
  Serious: No
  Sender: FDA-Public Use
  Company Number: US-LEO PHARMA-228483

PATIENT
  Age: 59 Year
  Sex: Female

DRUGS (1)
  1. PICATO [Suspect]
     Active Substance: INGENOL MEBUTATE
     Indication: ACTINIC KERATOSIS
     Dates: start: 20140611, end: 20140613

REACTIONS (7)
  - Application site pain [Recovering/Resolving]
  - Drug administered at inappropriate site [Unknown]
  - Application site pain [Not Recovered/Not Resolved]
  - Application site swelling [Recovering/Resolving]
  - Application site scab [Recovering/Resolving]
  - Application site erythema [Not Recovered/Not Resolved]
  - Application site vesicles [Recovering/Resolving]

NARRATIVE: CASE EVENT DATE: 20140611
